FAERS Safety Report 5498292-3 (Version None)
Quarter: 2007Q4

REPORT INFORMATION
  Report Type: 
  Country: None (occurrence: None)
  Receive Date: 20071025
  Receipt Date: 20070426
  Transmission Date: 20080405
  Serious: No
  Sender: FDA-Public Use
  Company Number: A0648883A

PATIENT
  Age: 64 Year
  Sex: Female

DRUGS (5)
  1. ADVAIR DISKUS 100/50 [Suspect]
     Indication: ASTHMA
     Route: 055
     Dates: start: 20070423
  2. UNKNOWN MEDICATION [Concomitant]
  3. LISINOPRIL [Concomitant]
  4. TRIMETRIN [Concomitant]
  5. ALPRAZOLAM [Concomitant]

REACTIONS (3)
  - DYSPHONIA [None]
  - HEADACHE [None]
  - HEART RATE INCREASED [None]
